FAERS Safety Report 8357803-0 (Version None)
Quarter: 2012Q2

REPORT INFORMATION
  Report Type: 
  Country: None (occurrence: None)
  Receive Date: 20120514
  Receipt Date: 20120501
  Transmission Date: 20120825
  Serious: Yes (Other)
  Sender: FDA-Public Use
  Company Number: US-ELI_LILLY_AND_COMPANY-US201203005568

PATIENT
  Sex: Male
  Weight: 150.4 kg

DRUGS (2)
  1. DULOXETINE HYDROCHLORIDE [Suspect]
     Indication: GENERALISED ANXIETY DISORDER
     Dosage: 2 DF, QD
     Route: 048
     Dates: start: 20120216, end: 20120314
  2. BENADRYL [Concomitant]
     Indication: INSOMNIA
     Dosage: UNK
     Dates: start: 20120311, end: 20120313

REACTIONS (2)
  - SUICIDAL IDEATION [None]
  - SELF INJURIOUS BEHAVIOUR [None]
